FAERS Safety Report 20753267 (Version 19)
Quarter: 2023Q4

REPORT INFORMATION
  Report Type: Spontaneous
  Country: CA (occurrence: CA)
  Receive Date: 20220426
  Receipt Date: 20231225
  Transmission Date: 20240109
  Serious: Yes (Death, Life-Threatening, Hospitalization, Disabling, Other)
  Sender: FDA-Public Use
  Company Number: None

PATIENT
  Age: 44 Year
  Sex: Female
  Weight: 97 kg

DRUGS (80)
  1. CETIRIZINE HYDROCHLORIDE [Suspect]
     Active Substance: CETIRIZINE HYDROCHLORIDE
     Indication: Rheumatoid arthritis
     Dosage: 10 MILLIGRAM
  2. STELARA [Suspect]
     Active Substance: USTEKINUMAB
     Indication: Product used for unknown indication
     Dosage: 45 MILLIGRAM
     Route: 058
  3. SIMPONI [Suspect]
     Active Substance: GOLIMUMAB
     Indication: Rheumatoid arthritis
     Dosage: 50 MBQ MONTHLY
     Route: 058
  4. REMICADE [Suspect]
     Active Substance: INFLIXIMAB
     Indication: Rheumatoid arthritis
     Dosage: 100 MILLIGRAM
     Route: 042
  5. REMICADE [Suspect]
     Active Substance: INFLIXIMAB
     Dosage: 500 MILLIGRAM
     Route: 042
  6. ACETAMINOPHEN [Suspect]
     Active Substance: ACETAMINOPHEN
     Indication: Product used for unknown indication
     Dosage: 10 MILLIGRAM
  7. PREDNISONE [Suspect]
     Active Substance: PREDNISONE
     Indication: Rheumatoid arthritis
     Dosage: 40 MILLIGRAM
  8. PREDNISONE [Suspect]
     Active Substance: PREDNISONE
     Indication: Condition aggravated
     Dosage: 7.5 MILLIGRAM
     Route: 048
  9. PREDNISONE [Suspect]
     Active Substance: PREDNISONE
     Dosage: 5 MILLIGRAM
  10. PREDNISONE [Suspect]
     Active Substance: PREDNISONE
     Dosage: 40 MILLIGRAM
     Route: 048
  11. PREDNISONE [Suspect]
     Active Substance: PREDNISONE
     Dosage: 1 GRAM
  12. PREDNISONE [Suspect]
     Active Substance: PREDNISONE
     Dosage: 5 GRAM
     Route: 048
  13. PREDNISONE [Suspect]
     Active Substance: PREDNISONE
     Dosage: 25 MILLIGRAM
     Route: 048
  14. PREDNISONE [Suspect]
     Active Substance: PREDNISONE
     Dosage: 1 MILLIGRAM
     Route: 048
  15. HUMIRA [Suspect]
     Active Substance: ADALIMUMAB
     Indication: Rheumatoid arthritis
     Dosage: 40 MILLIGRAM
     Route: 058
  16. HYDROCORTISONE ACETATE [Suspect]
     Active Substance: HYDROCORTISONE ACETATE
     Indication: Rheumatoid arthritis
     Dosage: 25 MILLIGRAM
     Route: 048
  17. HYDROCORTISONE ACETATE [Suspect]
     Active Substance: HYDROCORTISONE ACETATE
     Dosage: 25 MILLIGRAM
     Route: 058
  18. KEVZARA [Suspect]
     Active Substance: SARILUMAB
     Indication: Rheumatoid arthritis
     Dosage: UNK
  19. LEFLUNOMIDE [Suspect]
     Active Substance: LEFLUNOMIDE
     Indication: Rheumatoid arthritis
     Dosage: UNK
  20. OXYCODONE [Suspect]
     Active Substance: OXYCODONE
     Indication: Product used for unknown indication
     Dosage: UNK
  21. PERIOGARD [Suspect]
     Active Substance: CHLORHEXIDINE GLUCONATE
     Indication: Product used for unknown indication
     Dosage: UNK
     Route: 002
  22. PREDNISONE [Suspect]
     Active Substance: PREDNISONE
     Indication: Rheumatoid arthritis
     Dosage: 200 MILLIGRAM
     Route: 048
  23. PREDNISONE [Suspect]
     Active Substance: PREDNISONE
     Dosage: 7.5 MILLIGRAM, ONCE DAILY (QD)
  24. SULFAMETHOXAZOLE [Suspect]
     Active Substance: SULFAMETHOXAZOLE
     Indication: Product used for unknown indication
     Dosage: UNK
  25. XELJANZ [Suspect]
     Active Substance: TOFACITINIB CITRATE
     Indication: Rheumatoid arthritis
     Dosage: 5 MILLIGRAM, 2X/DAY (BID)
  26. XELJANZ [Suspect]
     Active Substance: TOFACITINIB CITRATE
     Dosage: 10 MILLIGRAM, ONCE DAILY (QD)
  27. XELJANZ [Suspect]
     Active Substance: TOFACITINIB CITRATE
     Dosage: 5 MILLIGRAM, 1 IN 2 DAYS
  28. DICLOFENAC SODIUM [Suspect]
     Active Substance: DICLOFENAC\DICLOFENAC SODIUM
     Indication: Rheumatoid arthritis
     Dosage: 500 MILLIGRAM
     Route: 047
  29. DICLOFENAC SODIUM [Suspect]
     Active Substance: DICLOFENAC\DICLOFENAC SODIUM
     Dosage: 500 MILLIGRAM
  30. APREPITANT [Suspect]
     Active Substance: APREPITANT
     Indication: Product used for unknown indication
     Dosage: UNK
  31. OXYCODONE HYDROCHLORIDE [Suspect]
     Active Substance: OXYCODONE HYDROCHLORIDE
     Indication: Product used for unknown indication
     Dosage: UNK
  32. TOPICORT [Suspect]
     Active Substance: DESOXIMETASONE
     Indication: Product used for unknown indication
     Dosage: UNK
  33. TRIMIPRAMINE [Suspect]
     Active Substance: TRIMIPRAMINE
     Indication: Product used for unknown indication
     Dosage: UNK
  34. ADALIMUMAB [Suspect]
     Active Substance: ADALIMUMAB\ISOPROPYL ALCOHOL
     Indication: Rheumatoid arthritis
     Dosage: 40 MILLIGRAM
     Route: 058
  35. ADALIMUMAB [Suspect]
     Active Substance: ADALIMUMAB\ISOPROPYL ALCOHOL
     Indication: Psoriatic arthropathy
     Dosage: 1 MILLIGRAM
     Route: 058
  36. ADALIMUMAB [Suspect]
     Active Substance: ADALIMUMAB\ISOPROPYL ALCOHOL
     Dosage: 4 MILLIGRAM
  37. ADALIMUMAB [Suspect]
     Active Substance: ADALIMUMAB\ISOPROPYL ALCOHOL
     Dosage: 400 MILLIGRAM
  38. ADALIMUMAB [Suspect]
     Active Substance: ADALIMUMAB\ISOPROPYL ALCOHOL
     Dosage: 20 MILLIGRAM
     Route: 058
  39. ELBASVIR [Suspect]
     Active Substance: ELBASVIR
     Indication: Rheumatoid arthritis
     Dosage: UNK
  40. ALENDRONATE SODIUM\CHOLECALCIFEROL [Suspect]
     Active Substance: ALENDRONATE SODIUM\CHOLECALCIFEROL
     Indication: Product used for unknown indication
     Dosage: UNK
  41. DIETARY SUPPLEMENT\HERBALS [Suspect]
     Active Substance: DIETARY SUPPLEMENT\HERBALS
     Indication: Product used for unknown indication
     Dosage: UNK
  42. CELEBREX [Suspect]
     Active Substance: CELECOXIB
     Indication: Rheumatoid arthritis
     Dosage: 7.5 MILLIGRAM
  43. CELEBREX [Suspect]
     Active Substance: CELECOXIB
     Dosage: 2 DOSAGE FORM
     Route: 048
  44. CELEBREX [Suspect]
     Active Substance: CELECOXIB
     Dosage: 10 MILLIGRAM
  45. CELEBREX [Suspect]
     Active Substance: CELECOXIB
     Dosage: 200 MILLIGRAM
  46. CELEBREX [Suspect]
     Active Substance: CELECOXIB
     Dosage: 75 MILLIGRAM
  47. COSENTYX [Suspect]
     Active Substance: SECUKINUMAB
     Indication: Psoriatic arthropathy
     Dosage: UNK
  48. COSENTYX [Suspect]
     Active Substance: SECUKINUMAB
     Indication: Rheumatoid arthritis
  49. CHOLECALCIFEROL [Suspect]
     Active Substance: CHOLECALCIFEROL
     Indication: Product used for unknown indication
     Dosage: UNK
  50. CALCIUM CARBONATE [Suspect]
     Active Substance: CALCIUM CARBONATE
     Indication: Product used for unknown indication
     Dosage: UNK
  51. CALCIUM GLUBIONATE [Suspect]
     Active Substance: CALCIUM GLUBIONATE
     Indication: Product used for unknown indication
     Dosage: 110 MILLIGRAM
  52. FLUMETHASONE PIVALATE [Suspect]
     Active Substance: FLUMETHASONE PIVALATE
     Indication: Product used for unknown indication
     Dosage: UNK
  53. FLUMETHASONE PIVALATE [Suspect]
     Active Substance: FLUMETHASONE PIVALATE
     Dosage: UNK
     Route: 058
  54. CHOLECALCIFEROL [Suspect]
     Active Substance: CHOLECALCIFEROL
     Indication: Product used for unknown indication
     Dosage: UNK
  55. DEXAMETHASONE [Suspect]
     Active Substance: DEXAMETHASONE
     Indication: Product used for unknown indication
     Dosage: UNK
  56. LYRICA [Suspect]
     Active Substance: PREGABALIN
     Indication: Product used for unknown indication
     Dosage: UNK
  57. MYCOPHENOLATE MOFETIL [Suspect]
     Active Substance: MYCOPHENOLATE MOFETIL
     Indication: Product used for unknown indication
     Dosage: UNK
  58. NAPROXEN SODIUM [Suspect]
     Active Substance: NAPROXEN\NAPROXEN SODIUM
     Indication: Rheumatoid arthritis
     Dosage: 500 MILLIGRAM 0.5 DAY
  59. NAPROXEN SODIUM [Suspect]
     Active Substance: NAPROXEN\NAPROXEN SODIUM
     Indication: Headache
     Dosage: 1000 MILLIGRAM 0.5 DAY
  60. NAPROXEN SODIUM [Suspect]
     Active Substance: NAPROXEN\NAPROXEN SODIUM
     Dosage: 500 MILLIGRAM
  61. TOCILIZUMAB [Suspect]
     Active Substance: TOCILIZUMAB
     Indication: Rheumatoid arthritis
     Dosage: UNK
     Route: 058
  62. OTEZLA [Suspect]
     Active Substance: APREMILAST
     Indication: Rheumatoid arthritis
     Dosage: 3 MILLIGRAM 0.5 DAY
     Route: 048
  63. OTEZLA [Suspect]
     Active Substance: APREMILAST
     Dosage: 3011.2 MILLIGRAM 1 DAY
     Route: 048
  64. PREDNISONE [Suspect]
     Active Substance: PREDNISONE
     Indication: Rheumatoid arthritis
     Dosage: UNK
  65. BORAGE SEED OIL [Suspect]
     Active Substance: BORAGE SEED OIL
     Indication: Product used for unknown indication
     Dosage: UNK
  66. NEOMYCIN SULFATE [Suspect]
     Active Substance: NEOMYCIN SULFATE
     Indication: Product used for unknown indication
     Dosage: UNK
  67. GRAMICIDIN [Suspect]
     Active Substance: GRAMICIDIN
     Indication: Product used for unknown indication
     Dosage: UNK
  68. NYSTATIN [Suspect]
     Active Substance: NYSTATIN
     Indication: Product used for unknown indication
     Dosage: UNK
  69. TRIAMCINOLONE [Suspect]
     Active Substance: TRIAMCINOLONE
     Indication: Product used for unknown indication
     Dosage: UNK
  70. SULFAMETHOXAZOLE\TRIMETHOPRIM [Suspect]
     Active Substance: SULFAMETHOXAZOLE\TRIMETHOPRIM
     Indication: Product used for unknown indication
     Dosage: UNK
  71. ALENDRONATE SODIUM\CHOLECALCIFEROL [Suspect]
     Active Substance: ALENDRONATE SODIUM\CHOLECALCIFEROL
     Indication: Rheumatoid arthritis
     Dosage: UNK
     Route: 048
  72. VITAMIN D3 [Suspect]
     Active Substance: CHOLECALCIFEROL
     Indication: Product used for unknown indication
     Dosage: UNK
  73. DOXYCYCLINE HYCLATE [Suspect]
     Active Substance: DOXYCYCLINE HYCLATE
     Indication: Product used for unknown indication
     Dosage: UNK
  74. BORAGE OIL [Suspect]
     Active Substance: BORAGE OIL
     Indication: Product used for unknown indication
     Dosage: UNK
  75. APREMILAST [Suspect]
     Active Substance: APREMILAST
     Indication: Product used for unknown indication
     Dosage: 3 MILLIGRAM 2 EVERY 1 DAYS; 1 EVERY 12 HOURS
  76. APREMILAST [Suspect]
     Active Substance: APREMILAST
     Dosage: 3 MILLIGRAM 0.5 DAYS
  77. ACETAMINOPHEN\CAFFEINE\CODEINE PHOSPHATE [Suspect]
     Active Substance: ACETAMINOPHEN\CAFFEINE\CODEINE PHOSPHATE
     Indication: Product used for unknown indication
     Dosage: 2 GRAM
  78. EMEND [Suspect]
     Active Substance: APREPITANT
     Indication: Product used for unknown indication
     Dosage: 2000 MILLIGRAM
  79. FOSAPREPITANT [Suspect]
     Active Substance: FOSAPREPITANT
     Indication: Rheumatoid arthritis
     Dosage: 2912 MILLIGRAM
  80. HYDROCORTISONE SODIUM SUCCINATE [Suspect]
     Active Substance: HYDROCORTISONE SODIUM SUCCINATE
     Indication: Rheumatoid arthritis
     Dosage: 25 MILLIGRAM

REACTIONS (77)
  - Rheumatoid arthritis [Fatal]
  - Chest pain [Not Recovered/Not Resolved]
  - Lower limb fracture [Unknown]
  - Infection [Not Recovered/Not Resolved]
  - Bursitis [Not Recovered/Not Resolved]
  - Depression [Unknown]
  - Blood cholesterol increased [Not Recovered/Not Resolved]
  - C-reactive protein abnormal [Not Recovered/Not Resolved]
  - Dry mouth [Not Recovered/Not Resolved]
  - Facet joint syndrome [Not Recovered/Not Resolved]
  - Hypertension [Not Recovered/Not Resolved]
  - Inflammation [Not Recovered/Not Resolved]
  - Joint range of motion decreased [Not Recovered/Not Resolved]
  - Lip dry [Not Recovered/Not Resolved]
  - Liver disorder [Not Recovered/Not Resolved]
  - Lung disorder [Not Recovered/Not Resolved]
  - Muscle spasms [Not Recovered/Not Resolved]
  - Musculoskeletal pain [Not Recovered/Not Resolved]
  - Night sweats [Not Recovered/Not Resolved]
  - Obesity [Not Recovered/Not Resolved]
  - Oedema [Not Recovered/Not Resolved]
  - Oedema peripheral [Not Recovered/Not Resolved]
  - Osteoarthritis [Not Recovered/Not Resolved]
  - Pain in extremity [Not Recovered/Not Resolved]
  - Paraesthesia [Not Recovered/Not Resolved]
  - Peripheral venous disease [Not Recovered/Not Resolved]
  - Rheumatoid factor positive [Not Recovered/Not Resolved]
  - Sleep disorder [Not Recovered/Not Resolved]
  - Anxiety [Not Recovered/Not Resolved]
  - Adjustment disorder with depressed mood [Unknown]
  - Amnesia [Unknown]
  - Breast cancer stage II [Unknown]
  - Decreased appetite [Unknown]
  - Delirium [Unknown]
  - Dislocation of vertebra [Unknown]
  - Gait disturbance [Unknown]
  - Grip strength decreased [Unknown]
  - Hypoaesthesia [Unknown]
  - Liver injury [Unknown]
  - Loss of personal independence in daily activities [Unknown]
  - Lupus vulgaris [Unknown]
  - Malaise [Unknown]
  - Memory impairment [Unknown]
  - Migraine [Unknown]
  - Muscular weakness [Unknown]
  - Psoriatic arthropathy [Unknown]
  - Rheumatic fever [Unknown]
  - Sciatica [Unknown]
  - Swollen joint count increased [Unknown]
  - Type 2 diabetes mellitus [Unknown]
  - Weight decreased [Unknown]
  - X-ray abnormal [Unknown]
  - Dyspepsia [Unknown]
  - Musculoskeletal stiffness [Not Recovered/Not Resolved]
  - Drug hypersensitivity [Not Recovered/Not Resolved]
  - Fibromyalgia [Unknown]
  - Mobility decreased [Unknown]
  - Vomiting [Unknown]
  - Wheezing [Unknown]
  - Wound infection [Not Recovered/Not Resolved]
  - Adverse drug reaction [Not Recovered/Not Resolved]
  - Disability [Unknown]
  - Eye injury [Not Recovered/Not Resolved]
  - Pulmonary fibrosis [Not Recovered/Not Resolved]
  - Thrombocytopenia [Not Recovered/Not Resolved]
  - Breast cancer stage III [Not Recovered/Not Resolved]
  - Road traffic accident [Unknown]
  - Gait inability [Unknown]
  - Deep vein thrombosis postoperative [Unknown]
  - Asthma [Unknown]
  - Autoimmune disorder [Unknown]
  - Pneumonia [Not Recovered/Not Resolved]
  - Nausea [Unknown]
  - Dizziness [Unknown]
  - Maternal exposure during pregnancy [Unknown]
  - Prescribed underdose [Unknown]
  - Prescribed overdose [Unknown]
